FAERS Safety Report 7622845-7 (Version None)
Quarter: 2011Q3

REPORT INFORMATION
  Report Type: 
  Country: None (occurrence: None)
  Receive Date: 20110720
  Receipt Date: 20110715
  Transmission Date: 20111222
  Serious: Yes (Death)
  Sender: FDA-Public Use
  Company Number: US-ASTELLAS-2011US003971

PATIENT
  Sex: Male

DRUGS (8)
  1. MYCAMINE [Suspect]
     Indication: CANDIDIASIS
     Dosage: 100 MG, UID/QD
     Route: 042
     Dates: start: 20110616, end: 20110626
  2. POTASSIUM CHLORIDE [Concomitant]
     Indication: HYPOKALAEMIA
     Dosage: 20 MG, BID
     Route: 048
  3. OXYCONTIN [Concomitant]
     Indication: PAIN MANAGEMENT
     Dosage: 40 MG, EVERY 8 HOURS
     Route: 048
  4. PRILOSEC [Concomitant]
     Indication: GASTROOESOPHAGEAL REFLUX DISEASE
     Dosage: 20 MG, BID
     Route: 048
  5. DILAUDID [Concomitant]
     Indication: PAIN MANAGEMENT
     Dosage: 4 MG, EVERY 3-4 HOURS
     Route: 048
  6. ZOFRAN [Concomitant]
     Indication: ANTIEMETIC SUPPORTIVE CARE
     Dosage: 8 MG, TID
     Route: 048
  7. ATIVAN [Concomitant]
     Indication: ANXIETY
     Dosage: 0.5 MG, EVERY 4 HOURS
     Route: 065
  8. OXYCODONE HCL [Concomitant]
     Indication: PAIN MANAGEMENT
     Dosage: 10 MG, EVERY 3-4 HOURS
     Route: 048

REACTIONS (1)
  - DEATH [None]
